FAERS Safety Report 4543675-9 (Version None)
Quarter: 2004Q4

REPORT INFORMATION
  Report Type: 
  Country: None (occurrence: None)
  Receive Date: 20041229
  Receipt Date: 20041229
  Transmission Date: 20050328
  Serious: Yes (Hospitalization, Disabling, Congenital Anomaly)
  Sender: FDA-Public Use
  Company Number: None

PATIENT
  Age: 48 Year
  Sex: Female
  Weight: 70.3075 kg

DRUGS (1)
  1. EFFEXOR XR [Suspect]
     Dosage: 2 150'S DAY   4 YEARS   ORAL
     Route: 048
     Dates: start: 20000101, end: 20040806

REACTIONS (22)
  - ABNORMAL BEHAVIOUR [None]
  - AGITATION [None]
  - ANGER [None]
  - ANXIETY [None]
  - BIPOLAR DISORDER [None]
  - CEREBROVASCULAR ACCIDENT [None]
  - DIPLOPIA [None]
  - DISTURBANCE IN ATTENTION [None]
  - DRUG DEPENDENCE [None]
  - DRUG WITHDRAWAL SYNDROME [None]
  - DYSPAREUNIA [None]
  - ECONOMIC PROBLEM [None]
  - EMOTIONAL DISORDER [None]
  - GRANDIOSITY [None]
  - INSOMNIA [None]
  - LOGORRHOEA [None]
  - LOSS OF CONSCIOUSNESS [None]
  - LOSS OF LIBIDO [None]
  - MANIA [None]
  - MENTAL IMPAIRMENT [None]
  - MOOD ALTERED [None]
  - VISUAL ACUITY REDUCED [None]
